FAERS Safety Report 20608558 (Version 1)
Quarter: 2022Q1

REPORT INFORMATION
  Report Type: Report from Study
  Country: US (occurrence: US)
  Receive Date: 20220317
  Receipt Date: 20220317
  Transmission Date: 20220424
  Serious: Yes (Death, Other)
  Sender: FDA-Public Use
  Company Number: US-PURDUE PHARMA-USA-2022-0292295

PATIENT
  Age: 41 Year
  Sex: Male

DRUGS (18)
  1. THEOPHYLLINE [Suspect]
     Active Substance: THEOPHYLLINE
     Indication: Product used for unknown indication
     Dosage: UNKNOWN
     Route: 048
  2. THEOPHYLLINE [Suspect]
     Active Substance: THEOPHYLLINE
     Dosage: UNKNOWNUNK
     Route: 055
  3. INDOMETHACIN [Suspect]
     Active Substance: INDOMETHACIN
     Indication: Product used for unknown indication
     Dosage: UNKNOWN
     Route: 048
  4. INDOMETHACIN [Suspect]
     Active Substance: INDOMETHACIN
     Dosage: UNKNOWN
     Route: 055
  5. GABAPENTIN [Suspect]
     Active Substance: GABAPENTIN
     Indication: Product used for unknown indication
     Dosage: UNKNOWN
     Route: 048
  6. GABAPENTIN [Suspect]
     Active Substance: GABAPENTIN
     Dosage: UNKNOWN
     Route: 055
  7. ALCOHOL [Suspect]
     Active Substance: ALCOHOL
     Indication: Product used for unknown indication
     Dosage: UNKNOWN
     Route: 048
  8. ALCOHOL [Suspect]
     Active Substance: ALCOHOL
     Dosage: UNKNOWN
     Route: 055
  9. ROFLUMILAST [Suspect]
     Active Substance: ROFLUMILAST
     Indication: Product used for unknown indication
     Dosage: UNKNOWN
     Route: 048
  10. ROFLUMILAST [Suspect]
     Active Substance: ROFLUMILAST
     Dosage: UNKNOWN
     Route: 055
  11. ROPINIROLE [Suspect]
     Active Substance: ROPINIROLE
     Indication: Product used for unknown indication
     Dosage: UNKNOWN
     Route: 048
  12. ROPINIROLE [Suspect]
     Active Substance: ROPINIROLE
     Dosage: UNKNOWN
     Route: 055
  13. MELOXICAM [Suspect]
     Active Substance: MELOXICAM
     Indication: Product used for unknown indication
     Dosage: UNKNOWN
     Route: 048
  14. MELOXICAM [Suspect]
     Active Substance: MELOXICAM
     Dosage: UNKNOWN
     Route: 055
  15. BENZONATATE [Suspect]
     Active Substance: BENZONATATE
     Indication: Product used for unknown indication
     Dosage: UNKNOWN
     Route: 048
  16. BENZONATATE [Suspect]
     Active Substance: BENZONATATE
     Dosage: UNKNOWN
     Route: 055
  17. RANOLAZINE [Suspect]
     Active Substance: RANOLAZINE
     Indication: Product used for unknown indication
     Dosage: UNKNOWN
     Route: 048
  18. RANOLAZINE [Suspect]
     Active Substance: RANOLAZINE
     Dosage: UNKNOWN
     Route: 055

REACTIONS (1)
  - Drug abuse [Fatal]

NARRATIVE: CASE EVENT DATE: 20200101
